FAERS Safety Report 6570080-6 (Version None)
Quarter: 2010Q1

REPORT INFORMATION
  Report Type: 
  Country: None (occurrence: None)
  Receive Date: 20100129
  Receipt Date: 20100122
  Transmission Date: 20100710
  Serious: Yes (Other)
  Sender: FDA-Public Use
  Company Number: DSA_41670_2009

PATIENT
  Sex: Female

DRUGS (3)
  1. WELLBUTRIN XL [Suspect]
     Indication: ATTENTION DEFICIT/HYPERACTIVITY DISORDER
     Dosage: (300 - 450 MG PER DAY ORAL)
     Route: 048
     Dates: start: 20040625
  2. WELLBUTRIN XL [Suspect]
     Indication: DEPRESSION
     Dosage: (300 - 450 MG PER DAY ORAL)
     Route: 048
     Dates: start: 20040625
  3. METHYLPHENIDATE [Concomitant]

REACTIONS (3)
  - CAESAREAN SECTION [None]
  - DRUG EXPOSURE DURING PREGNANCY [None]
  - PREGNANCY [None]
